FAERS Safety Report 10580987 (Version 1)
Quarter: 2014Q4

REPORT INFORMATION
  Report Type: Spontaneous
  Country: KR (occurrence: KR)
  Receive Date: 20141113
  Receipt Date: 20141113
  Transmission Date: 20150529
  Serious: Yes (Other)
  Sender: FDA-Public Use
  Company Number: KR-ACCORD-026961

PATIENT
  Age: 59 Year
  Sex: Male

DRUGS (2)
  1. METHOTREXATE [Suspect]
     Active Substance: METHOTREXATE
     Indication: SARCOMA
     Dosage: EVERY 2 WEEKS
  2. FOLINIC ACID [Concomitant]
     Active Substance: LEUCOVORIN
     Dosage: FOLLOWED 24?HOURS AFTER MTX ADMINISTRATION

REACTIONS (1)
  - No therapeutic response [Unknown]
